FAERS Safety Report 7254693-4 (Version None)
Quarter: 2011Q1

REPORT INFORMATION
  Report Type: 
  Country: None (occurrence: None)
  Receive Date: 20110129
  Receipt Date: 20100419
  Transmission Date: 20110831
  Serious: No
  Sender: FDA-Public Use
  Company Number: US-ABBOTT-10P-163-0639843-00

PATIENT
  Sex: Male
  Weight: 93.07 kg

DRUGS (5)
  1. HUMIRA [Suspect]
     Dosage: DAY 2
     Dates: start: 20100327, end: 20100327
  2. HUMIRA [Suspect]
     Indication: CROHN'S DISEASE
     Dosage: DAY 15
     Dates: start: 20100409, end: 20100409
  3. QUESTRAN [Concomitant]
     Indication: PRODUCT USED FOR UNKNOWN INDICATION
  4. LIALDA [Concomitant]
     Indication: PRODUCT USED FOR UNKNOWN INDICATION
  5. HUMIRA [Suspect]
     Dosage: DAY 1
     Dates: start: 20100326, end: 20100326

REACTIONS (5)
  - PAIN [None]
  - MALAISE [None]
  - FATIGUE [None]
  - HEADACHE [None]
  - OROPHARYNGEAL PAIN [None]
